FAERS Safety Report 16508727 (Version 1)
Quarter: 2019Q3

REPORT INFORMATION
  Report Type: Spontaneous
  Country: US (occurrence: US)
  Receive Date: 20190702
  Receipt Date: 20190702
  Transmission Date: 20191004
  Serious: No
  Sender: FDA-Public Use
  Company Number: US-ROCHE-2260193

PATIENT
  Age: 61 Year
  Sex: Female
  Weight: 59.02 kg

DRUGS (6)
  1. CALENDULA [Concomitant]
     Route: 061
     Dates: start: 201806
  2. XELODA [Suspect]
     Active Substance: CAPECITABINE
     Indication: COLON CANCER STAGE II
     Dosage: 2000 MG TOTAL PER DAY, AND REDUCED IT BY 250 MG, DOWN TO 1200 MG PER DAY, AND HER SCHEDULE?WAS 2 WEE
     Route: 048
     Dates: start: 20180505, end: 20181020
  3. PERCOCET [Concomitant]
     Active Substance: ACETAMINOPHEN\OXYCODONE HYDROCHLORIDE
     Route: 065
     Dates: start: 201807
  4. UREA. [Concomitant]
     Active Substance: UREA
     Route: 061
     Dates: start: 201806
  5. LIDOCAIN [LIDOCAINE] [Concomitant]
     Route: 065
     Dates: start: 201808
  6. MOMETASONE FUROATE MONOHYDRATE. [Concomitant]
     Active Substance: MOMETASONE FUROATE MONOHYDRATE
     Route: 061
     Dates: start: 201808

REACTIONS (6)
  - Blister [Recovering/Resolving]
  - Skin exfoliation [Recovering/Resolving]
  - Swelling [Recovering/Resolving]
  - Lacrimation increased [Unknown]
  - Rhinorrhoea [Not Recovered/Not Resolved]
  - Pain [Not Recovered/Not Resolved]

NARRATIVE: CASE EVENT DATE: 201806
